FAERS Safety Report 17350161 (Version 2)
Quarter: 2020Q1

REPORT INFORMATION
  Report Type: Spontaneous
  Country: US (occurrence: US)
  Receive Date: 20200130
  Receipt Date: 20200314
  Transmission Date: 20200409
  Serious: Yes (Death, Hospitalization, Other)
  Sender: FDA-Public Use
  Company Number: US-009507513-2001USA010186

PATIENT
  Sex: Female
  Weight: 52.15 kg

DRUGS (20)
  1. GABAPENTIN. [Concomitant]
     Active Substance: GABAPENTIN
     Indication: DIABETES MELLITUS
     Dosage: UNK
     Dates: start: 20130613, end: 20180222
  2. SPIRIVA [Concomitant]
     Active Substance: TIOTROPIUM BROMIDE MONOHYDRATE
     Dosage: UNK
     Dates: start: 20150407, end: 20171209
  3. TERCONAZOLE. [Concomitant]
     Active Substance: TERCONAZOLE
     Indication: ANTIFUNGAL TREATMENT
     Dosage: UNK
     Dates: start: 20110914, end: 20160523
  4. ONDANSETRON [Concomitant]
     Active Substance: ONDANSETRON
     Indication: DIABETES MELLITUS
     Dosage: UNK
     Dates: start: 20111118, end: 20160507
  5. ACETAMINOPHEN (+) HYDROCODONE BITARTRATE [Concomitant]
     Active Substance: ACETAMINOPHEN\HYDROCODONE BITARTRATE
     Indication: ANALGESIC THERAPY
     Dosage: UNK
     Dates: start: 20110404, end: 20160925
  6. OXYCODONE [Suspect]
     Active Substance: OXYCODONE
  7. LORAZEPAM. [Concomitant]
     Active Substance: LORAZEPAM
     Indication: SEDATION
     Dosage: UNK
     Dates: start: 20100622, end: 20180125
  8. AMLODIPINE BESYLATE. [Concomitant]
     Active Substance: AMLODIPINE BESYLATE
     Indication: HYPERTENSION
     Dosage: UNK
     Dates: start: 20101005, end: 20180301
  9. JANUVIA [Suspect]
     Active Substance: SITAGLIPTIN PHOSPHATE
     Indication: TYPE 2 DIABETES MELLITUS
     Dosage: 100 MG, ONCE DAILY
     Route: 048
     Dates: start: 20160216, end: 20170220
  10. METOPROLOL. [Concomitant]
     Active Substance: METOPROLOL
     Indication: HYPERTENSION
     Dosage: UNK
     Dates: start: 20100428, end: 20170410
  11. PROAIR HFA [Concomitant]
     Active Substance: ALBUTEROL SULFATE
     Indication: ASTHMA
     Dosage: UNK
     Dates: start: 20140209, end: 20170408
  12. PRINIVIL [Concomitant]
     Active Substance: LISINOPRIL
     Indication: HYPERTENSION
     Dosage: UNK
     Dates: start: 20130129, end: 20180327
  13. ESCITALOPRAM [Concomitant]
     Active Substance: ESCITALOPRAM OXALATE
     Indication: DEPRESSION
     Dosage: UNK
     Dates: start: 20120619, end: 20180124
  14. SPIRONOLACTONE. [Concomitant]
     Active Substance: SPIRONOLACTONE
     Indication: DIURETIC THERAPY
     Dosage: UNK
     Dates: start: 20150619, end: 20180320
  15. PROVENTIL [Concomitant]
     Active Substance: ALBUTEROL
     Indication: ASTHMA
     Dosage: UNK
     Dates: start: 20150923, end: 20151010
  16. OMEPRAZOLE. [Concomitant]
     Active Substance: OMEPRAZOLE
     Dosage: UNK
     Dates: start: 20101005, end: 20180301
  17. HYDROCHLOROTHIAZIDE. [Concomitant]
     Active Substance: HYDROCHLOROTHIAZIDE
     Indication: DIURETIC THERAPY
     Dosage: UNK
     Dates: start: 20100428, end: 20161205
  18. FLUTICASONE. [Concomitant]
     Active Substance: FLUTICASONE
     Indication: STEROID THERAPY
     Dosage: UNK
     Dates: start: 20140113, end: 20171013
  19. LIDOCAINE. [Concomitant]
     Active Substance: LIDOCAINE
     Indication: ANALGESIC THERAPY
     Dosage: UNK
     Dates: start: 20140625, end: 20161213
  20. SYMBICORT [Concomitant]
     Active Substance: BUDESONIDE\FORMOTEROL FUMARATE DIHYDRATE
     Indication: ASTHMA
     Dosage: UNK
     Dates: start: 20150720, end: 20170114

REACTIONS (18)
  - Anuria [Not Recovered/Not Resolved]
  - Vision blurred [Not Recovered/Not Resolved]
  - Abnormal loss of weight [Unknown]
  - Vomiting [Recovered/Resolved]
  - Metastases to kidney [Unknown]
  - Metastases to liver [Unknown]
  - Pancreatic carcinoma metastatic [Not Recovered/Not Resolved]
  - Pancreatitis [Not Recovered/Not Resolved]
  - Chronic obstructive pulmonary disease [Unknown]
  - Renal artery stent placement [Unknown]
  - Goitre [Unknown]
  - Adrenal mass [Unknown]
  - Hydronephrosis [Unknown]
  - Abdominal pain [Not Recovered/Not Resolved]
  - Cerebrovascular accident [Not Recovered/Not Resolved]
  - Death [Fatal]
  - Nausea [Not Recovered/Not Resolved]
  - Somnolence [Unknown]

NARRATIVE: CASE EVENT DATE: 2016
